FAERS Safety Report 8087675-3 (Version None)
Quarter: 2012Q1

REPORT INFORMATION
  Report Type: 
  Country: None (occurrence: None)
  Receive Date: 20120128
  Receipt Date: 20110409
  Transmission Date: 20120608
  Serious: No
  Sender: FDA-Public Use
  Company Number: US-ABBOTT-11P-163-0717909-00

PATIENT
  Age: 39 Year
  Sex: Male

DRUGS (5)
  1. VICODIN [Concomitant]
     Indication: PAIN
     Dosage: 7.5/50, AS NEEDED
  2. ANDROGEL [Concomitant]
     Indication: ERECTILE DYSFUNCTION
     Dosage: GEL, DAILY
  3. HUMIRA [Suspect]
     Indication: RHEUMATOID ARTHRITIS
     Dates: start: 20101101
  4. ARMODAFINIL [Concomitant]
     Indication: RHEUMATOID ARTHRITIS
  5. FLUXOTINE [Concomitant]
     Indication: ERECTILE DYSFUNCTION

REACTIONS (1)
  - FURUNCLE [None]
